FAERS Safety Report 17517622 (Version 1)
Quarter: 2020Q1

REPORT INFORMATION
  Report Type: Spontaneous
  Country: FR (occurrence: FR)
  Receive Date: 20200309
  Receipt Date: 20200309
  Transmission Date: 20200409
  Serious: Yes (Other)
  Sender: FDA-Public Use
  Company Number: FR-MYLANLABS-2020M1023949

PATIENT

DRUGS (1)
  1. GEMCITABINE. [Suspect]
     Active Substance: GEMCITABINE
     Indication: PANCREATIC CARCINOMA
     Dosage: 1000 MG/M2, CYCLIC (BY 30-MIN IV PERFUSION ON DAY 1 WEEKLY FOR 3 WEEKS) IN THE 28-DAY TREATMENT CYCL
     Route: 042

REACTIONS (1)
  - Gamma-glutamyltransferase increased [Unknown]
